FAERS Safety Report 9029701 (Version 2)
Quarter: 2013Q1

REPORT INFORMATION
  Report Type: Spontaneous
  Country: FR (occurrence: FR)
  Receive Date: 20130124
  Receipt Date: 20130130
  Transmission Date: 20140127
  Serious: Yes (Hospitalization)
  Sender: FDA-Public Use
  Company Number: FR-AMGEN-FRASP2013004583

PATIENT
  Age: 72 Year
  Sex: Male

DRUGS (6)
  1. VECTIBIX [Suspect]
     Indication: COLON CANCER
     Dosage: UNK
     Dates: start: 20121128
  2. FLUOROURACIL [Concomitant]
     Indication: COLON CANCER
     Dosage: UNK
     Dates: start: 20121114
  3. OXALIPLATIN [Concomitant]
     Indication: COLON CANCER
     Dosage: UNK
     Dates: start: 20121114
  4. DOXYCYCLINE [Concomitant]
     Indication: PROPHYLAXIS
     Dosage: 100 MG, UNK
     Route: 048
     Dates: start: 20121214, end: 20121227
  5. CO-APROVEL [Concomitant]
     Dosage: 300/12.5
  6. UROREC [Concomitant]
     Dosage: 8 MG, UNK

REACTIONS (1)
  - Hepatitis cholestatic [Recovering/Resolving]
